FAERS Safety Report 25882921 (Version 1)
Quarter: 2025Q4

REPORT INFORMATION
  Report Type: Spontaneous
  Country: US (occurrence: US)
  Receive Date: 20251006
  Receipt Date: 20251006
  Transmission Date: 20260117
  Serious: Yes (Other)
  Sender: VALIDUS
  Company Number: US-VALIDUS PHARMACEUTICALS LLC-VLDS-RB-2025-00223

PATIENT

DRUGS (2)
  1. LASIX [Suspect]
     Active Substance: FUROSEMIDE
     Indication: Food allergy
     Dosage: 60 MILLIGRAM, QD
     Route: 048
  2. LASIX [Suspect]
     Active Substance: FUROSEMIDE
     Dosage: 60 MILLIGRAM, WEEKLY (DOSE REDUCED)
     Route: 048

REACTIONS (2)
  - Angioedema [Unknown]
  - Drug ineffective [Unknown]
